FAERS Safety Report 6051878-X (Version None)
Quarter: 2009Q1

REPORT INFORMATION
  Report Type: 
  Country: None (occurrence: None)
  Receive Date: 20090121
  Receipt Date: 20090121
  Transmission Date: 20090719
  Serious: Yes (Hospitalization)
  Sender: FDA-Public Use
  Company Number: None

PATIENT
  Sex: Male

DRUGS (3)
  1. PFIZER-DEPOMEDROL 40MG [Suspect]
     Indication: MUSCLE DISORDER
     Dosage: ONE INJECTION OF 1 CC
     Dates: start: 20090105
  2. LIDOCAINE - 1% AND EPINEPHRINE 1:100,000 BY HOSPIRA [Suspect]
     Indication: LUMBAR RADICULOPATHY
     Dosage: ONE INJECTION OF 1 CC
     Dates: start: 20090105
  3. HOSPIRA-MARCAINE 5% [Suspect]
     Dosage: ONE INJECTION OF 1 CC EACH
     Dates: start: 20090105

REACTIONS (2)
  - INFECTION [None]
  - MUSCLE DISORDER [None]
